FAERS Safety Report 7976832-X (Version None)
Quarter: 2011Q4

REPORT INFORMATION
  Report Type: 
  Country: None (occurrence: None)
  Receive Date: 20111213
  Receipt Date: 20111103
  Transmission Date: 20120403
  Serious: No
  Sender: FDA-Public Use
  Company Number: US-AMGEN-USASP2011057676

PATIENT
  Age: 73 Year
  Sex: Female

DRUGS (2)
  1. ENBREL [Suspect]
     Indication: RHEUMATOID ARTHRITIS
     Dosage: 50 MG, QWK
     Dates: start: 20020302
  2. TREXALL [Concomitant]
     Dosage: 10 MG, UNK
     Dates: start: 20020101

REACTIONS (4)
  - OEDEMA PERIPHERAL [None]
  - PAIN [None]
  - INJECTION SITE PAIN [None]
  - JOINT SWELLING [None]
